FAERS Safety Report 8490502-3 (Version None)
Quarter: 2012Q3

REPORT INFORMATION
  Report Type: 
  Country: None (occurrence: None)
  Receive Date: 20120705
  Receipt Date: 20120625
  Transmission Date: 20120928
  Serious: Yes (Hospitalization, Other)
  Sender: FDA-Public Use
  Company Number: DE-TEVA-232702ISR

PATIENT
  Sex: Male

DRUGS (1)
  1. COPAXONE [Suspect]
     Indication: MULTIPLE SCLEROSIS
     Dosage: 20 MILLIGRAM;
     Route: 058
     Dates: start: 20090106

REACTIONS (9)
  - NEUROGENIC BLADDER [None]
  - INTERVERTEBRAL DISC PROTRUSION [None]
  - PARAPLEGIA [None]
  - MUSCULOSKELETAL PAIN [None]
  - ABSCESS [None]
  - MUSCLE SPASTICITY [None]
  - SPINAL CORD COMPRESSION [None]
  - HYPOAESTHESIA [None]
  - ILEUS PARALYTIC [None]
